FAERS Safety Report 20946514 (Version 1)
Quarter: 2022Q2

REPORT INFORMATION
  Report Type: Spontaneous
  Country: US (occurrence: None)
  Receive Date: 20220610
  Receipt Date: 20220610
  Transmission Date: 20220721
  Serious: No
  Sender: FDA-Public Use
  Company Number: None

PATIENT
  Sex: Female

DRUGS (1)
  1. NUCALA [Suspect]
     Active Substance: MEPOLIZUMAB
     Indication: Asthma
     Dosage: FREQUENCY : MONTHLY;?
     Route: 058
     Dates: start: 20220504

REACTIONS (7)
  - Hypertension [None]
  - Chest pain [None]
  - Pain in jaw [None]
  - Hyperhidrosis [None]
  - Headache [None]
  - Middle insomnia [None]
  - Asthenia [None]
